FAERS Safety Report 8089025 (Version 2)
Quarter: 2012Q4

REPORT INFORMATION
  Report Type: 
  Country: JP (occurrence: JP)
  Receive Date: 20110812
  Receipt Date: 20120904
  Transmission Date: 20130627
  Serious: Yes (Other)
  Sender: FDA-Public Use
  Company Number: PHHY2011JP71662

PATIENT

DRUGS (2)
  1. VILDAGLIPTIN [Suspect]
     Dosage: UNK
     Route: 048
     Dates: start: 201106
  2. LAMISIL [Suspect]
     Route: 048
     Dates: start: 201106

REACTIONS (3)
  - Cerebral infarction [Unknown]
  - Dysarthria [Unknown]
  - Reading disorder [Unknown]
